FAERS Safety Report 4614735-9 (Version None)
Quarter: 2005Q1

REPORT INFORMATION
  Report Type: 
  Country: None (occurrence: None)
  Receive Date: 20050322
  Receipt Date: 20050317
  Transmission Date: 20050727
  Serious: Yes (Death)
  Sender: FDA-Public Use
  Company Number: 200510841JP

PATIENT
  Age: 80 Year
  Sex: Male

DRUGS (1)
  1. TAXOTERE [Suspect]
     Route: 041

REACTIONS (3)
  - ANAPHYLACTIC SHOCK [None]
  - ASPIRATION [None]
  - CHOKING [None]
